FAERS Safety Report 7315077-3 (Version None)
Quarter: 2011Q1

REPORT INFORMATION
  Report Type: 
  Country: None (occurrence: None)
  Receive Date: 20110225
  Receipt Date: 20100419
  Transmission Date: 20110831
  Serious: No
  Sender: FDA-Public Use
  Company Number: US-MYLANLABS-2010S1005536

PATIENT
  Age: 17 Year
  Sex: Male

DRUGS (4)
  1. AMNESTEEM [Suspect]
     Indication: ACNE
     Route: 048
     Dates: start: 20091012, end: 20091201
  2. AMNESTEEM [Suspect]
     Route: 048
     Dates: start: 20100201, end: 20100210
  3. AMNESTEEM [Suspect]
     Route: 048
     Dates: start: 20091101, end: 20091201
  4. AMNESTEEM [Suspect]
     Route: 048
     Dates: start: 20091201, end: 20100131

REACTIONS (2)
  - DEPRESSION [None]
  - MOOD ALTERED [None]
